FAERS Safety Report 8601899-5 (Version None)
Quarter: 2012Q3

REPORT INFORMATION
  Report Type: 
  Country: None (occurrence: None)
  Receive Date: 20120817
  Receipt Date: 20120810
  Transmission Date: 20120928
  Serious: No
  Sender: FDA-Public Use
  Company Number: US-B.I. PHARMACEUTICALS,INC./RIDGEFIELD-2012-BP-19144BP

PATIENT
  Sex: Female

DRUGS (7)
  1. LOSARTAN POTASSIUM [Concomitant]
     Route: 048
  2. CARDIZEM [Suspect]
     Route: 048
  3. PRADAXA [Suspect]
     Indication: ATRIAL FIBRILLATION
     Dosage: 300 MG
     Route: 048
     Dates: start: 20100101
  4. LISINOPRIL [Concomitant]
     Route: 048
  5. CLONAZEPAM [Concomitant]
     Indication: SLEEP DISORDER
     Route: 048
  6. FLECAINIDE ACETATE [Concomitant]
     Indication: ATRIAL FIBRILLATION
     Route: 048
  7. OMEPRAZOLE [Concomitant]
     Indication: GASTROOESOPHAGEAL REFLUX DISEASE
     Route: 048

REACTIONS (4)
  - SKIN WARM [None]
  - ARTHRALGIA [None]
  - JOINT SWELLING [None]
  - CONTUSION [None]
